FAERS Safety Report 13573411 (Version 3)
Quarter: 2017Q3

REPORT INFORMATION
  Report Type: Spontaneous
  Country: US (occurrence: US)
  Receive Date: 20170523
  Receipt Date: 20170804
  Transmission Date: 20171127
  Serious: Yes (Death, Hospitalization)
  Sender: FDA-Public Use
  Company Number: US-PFIZER INC-2017222462

PATIENT
  Age: 68 Year
  Sex: Female

DRUGS (1)
  1. SUTENT [Suspect]
     Active Substance: SUNITINIB MALATE
     Indication: RENAL CELL CARCINOMA
     Dosage: 20 MG, DAILY
     Dates: start: 201409, end: 201702

REACTIONS (4)
  - Influenza [Fatal]
  - Hepatic failure [Fatal]
  - Pneumonia [Fatal]
  - Portal vein thrombosis [Fatal]

NARRATIVE: CASE EVENT DATE: 201702
